FAERS Safety Report 7334300-2 (Version None)
Quarter: 2011Q1

REPORT INFORMATION
  Report Type: 
  Country: None (occurrence: None)
  Receive Date: 20110307
  Receipt Date: 20110225
  Transmission Date: 20110831
  Serious: Yes (Other)
  Sender: FDA-Public Use
  Company Number: US-BAYER-2011-018155

PATIENT
  Age: 29 Year
  Sex: Female

DRUGS (3)
  1. MIRENA [Suspect]
     Indication: DYSMENORRHOEA
  2. MIRENA [Suspect]
     Indication: CONTRACEPTION
  3. MIRENA [Suspect]
     Indication: MENORRHAGIA
     Dosage: CONTINUOUSLY
     Route: 015
     Dates: start: 20100801

REACTIONS (2)
  - DEVICE DISLOCATION [None]
  - VAGINAL HAEMORRHAGE [None]
